FAERS Safety Report 14973949 (Version 1)
Quarter: 2018Q2

REPORT INFORMATION
  Report Type: Spontaneous
  Country: US (occurrence: US)
  Receive Date: 20180514
  Receipt Date: 20180514
  Transmission Date: 20180711
  Serious: Yes (Hospitalization)
  Sender: FDA-Public Use
  Company Number: None

PATIENT
  Age: 57 Year
  Sex: Female

DRUGS (1)
  1. NIVOLUMAB [Suspect]
     Active Substance: NIVOLUMAB
     Indication: METASTATIC RENAL CELL CARCINOMA
     Dosage: ?          OTHER FREQUENCY:EVERY TWO WEEKS;?
     Route: 042
     Dates: start: 20180510, end: 20180510

REACTIONS (7)
  - Bronchial obstruction [None]
  - Cough [None]
  - Bronchial secretion retention [None]
  - Back pain [None]
  - Haemothorax [None]
  - Bronchitis [None]
  - Pyrexia [None]

NARRATIVE: CASE EVENT DATE: 20180511
